FAERS Safety Report 9507275 (Version 1)
Quarter: 2013Q3

REPORT INFORMATION
  Report Type: Spontaneous
  Country: NL (occurrence: NL)
  Receive Date: 20130909
  Receipt Date: 20130909
  Transmission Date: 20140515
  Serious: Yes (Hospitalization)
  Sender: FDA-Public Use
  Company Number: NL-IPSEN BIOPHARMACEUTICALS, INC.-2013-3752

PATIENT
  Age: 64 Year
  Sex: Female

DRUGS (1)
  1. SOMATULINE AUTOSOLUTION 90MG(LANREOTIDE AUTOGEL) (LANREOTIDE) (LANREOTIDE ACETATE) [Suspect]
     Indication: NEUROENDOCRINE CARCINOMA METASTATIC
     Dosage: 120 MG
     Route: 058
     Dates: start: 20121219

REACTIONS (1)
  - Heart valve operation [Recovered/Resolved]
